FAERS Safety Report 16461922 (Version 1)
Quarter: 2019Q2

REPORT INFORMATION
  Report Type: Spontaneous
  Country: EG (occurrence: EG)
  Receive Date: 20190621
  Receipt Date: 20190621
  Transmission Date: 20190711
  Serious: Yes (Hospitalization)
  Sender: FDA-Public Use
  Company Number: EG-HIKMA PHARMACEUTICALS USA INC.-EG-H14001-19-03975

PATIENT
  Sex: Male

DRUGS (4)
  1. SOLU-MEDROL [Suspect]
     Active Substance: METHYLPREDNISOLONE SODIUM SUCCINATE
     Indication: LYMPHOMA
     Route: 042
  2. ETOPUL [Suspect]
     Active Substance: ETOPOSIDE
     Indication: LYMPHOMA
     Route: 042
  3. TABINE [Suspect]
     Active Substance: CYTARABINE
     Indication: LYMPHOMA
     Route: 042
  4. CYTOPLATIN [Suspect]
     Active Substance: CISPLATIN
     Indication: LYMPHOMA
     Route: 042

REACTIONS (3)
  - Rectal fissure [Recovered/Resolved]
  - Diarrhoea [Recovered/Resolved]
  - Proctalgia [Recovered/Resolved]
